FAERS Safety Report 24300131 (Version 1)
Quarter: 2024Q3

REPORT INFORMATION
  Report Type: Spontaneous
  Country: US (occurrence: None)
  Receive Date: 20240909
  Receipt Date: 20240909
  Transmission Date: 20241017
  Serious: Yes (Other)
  Sender: Public
  Company Number: None

PATIENT
  Age: 77 Year
  Sex: Female
  Weight: 74.7 kg

DRUGS (3)
  1. LENALIDOMIDE [Suspect]
     Active Substance: LENALIDOMIDE
     Indication: Plasma cell myeloma
     Dosage: 15 MG DAILY ORAL
     Route: 048
  2. BORTEZOMIB [Suspect]
     Active Substance: BORTEZOMIB
  3. DARZALEX [Suspect]
     Active Substance: DARATUMUMAB

REACTIONS (9)
  - Laryngitis [None]
  - Cough [None]
  - Oedema peripheral [None]
  - Dysgeusia [None]
  - Dyspnoea [None]
  - Rash [None]
  - Paraesthesia [None]
  - Cheilitis [None]
  - Stomatitis [None]

NARRATIVE: CASE EVENT DATE: 20240909
